FAERS Safety Report 26157376 (Version 2)
Quarter: 2025Q4

REPORT INFORMATION
  Report Type: Spontaneous
  Country: EU (occurrence: EU)
  Receive Date: 20251215
  Receipt Date: 20251219
  Transmission Date: 20260119
  Serious: Yes (Other)
  Sender: ALEXION PHARMACEUTICALS
  Company Number: EU-AstraZeneca-CH-01011366A

PATIENT
  Sex: Female
  Weight: 86 kg

DRUGS (2)
  1. FASLODEX [Suspect]
     Active Substance: FULVESTRANT
     Indication: Breast cancer
     Dosage: UNK
     Route: 065
     Dates: start: 20220629, end: 20250423
  2. FASLODEX [Suspect]
     Active Substance: FULVESTRANT

REACTIONS (1)
  - Disease progression [Unknown]
